FAERS Safety Report 8852543 (Version 1)
Quarter: 2012Q4

REPORT INFORMATION
  Report Type: 
  Country: CH (occurrence: CH)
  Receive Date: 20121022
  Receipt Date: 20121022
  Transmission Date: 20130627
  Serious: Yes (Death, Other)
  Sender: FDA-Public Use
  Company Number: PHHY2012CH093684

PATIENT

DRUGS (10)
  1. CICLOSPORIN [Suspect]
     Indication: PROPHYLAXIS AGAINST GRAFT VERSUS HOST DISEASE
  2. MYCOPHENOLATE MOFETIL [Suspect]
     Indication: PROPHYLAXIS AGAINST GRAFT VERSUS HOST DISEASE
  3. ETOPOSIDE [Suspect]
     Indication: BONE MARROW CONDITIONING REGIMEN
     Dosage: 200 mg/m2, BID
     Route: 042
  4. CYTARABINE [Suspect]
     Indication: BONE MARROW CONDITIONING REGIMEN
     Dosage: 200 mg/m2, BID
     Route: 042
  5. FLUDARABINE [Interacting]
     Indication: BONE MARROW CONDITIONING REGIMEN
     Dosage: 30 mg/m2, QD
  6. CARMUSTINE [Suspect]
     Indication: BONE MARROW CONDITIONING REGIMEN
     Dosage: 300 mg/m2, QD
     Route: 042
  7. MELPHALAN [Interacting]
     Indication: BONE MARROW CONDITIONING REGIMEN
     Dosage: 140 mg/m2, QD
     Route: 042
  8. VALACICLOVIR [Concomitant]
     Indication: PROPHYLAXIS
     Dosage: 500 mg, BID
  9. FLUCONAZOLE [Concomitant]
     Dosage: 400 mg, QW
  10. CO-TRIMOXAZOLE [Concomitant]

REACTIONS (4)
  - Cerebral haemorrhage [Fatal]
  - Mucosal inflammation [Unknown]
  - Febrile neutropenia [Unknown]
  - Drug interaction [Unknown]
